FAERS Safety Report 15820020 (Version 2)
Quarter: 2019Q1

REPORT INFORMATION
  Report Type: Report from Study
  Country: CN (occurrence: CN)
  Receive Date: 20190114
  Receipt Date: 20190117
  Transmission Date: 20190417
  Serious: Yes (Hospitalization)
  Sender: FDA-Public Use
  Company Number: CN-ROCHE-2243540

PATIENT
  Age: 63 Year
  Sex: Female
  Weight: 56 kg

DRUGS (4)
  1. PACLITAXEL. [Suspect]
     Active Substance: PACLITAXEL
     Indication: OVARIAN CANCER
     Dosage: DATE OF MOST RECENT DOSE (259 MG) OF PACLITAXEL PRIOR?TO AE ONSET 29/AUG/2018
     Route: 042
     Dates: start: 20180504
  2. CARBOPLATIN. [Suspect]
     Active Substance: CARBOPLATIN
     Indication: OVARIAN CANCER
     Dosage: DATE OF MOST RECENT DOSE (605 MG) OF CARBOPLATIN?PRIOR TO AE ONSET 29/AUG/2018
     Route: 042
     Dates: start: 20180504
  3. PLACEBO [Suspect]
     Active Substance: UNSPECIFIED INGREDIENT
     Indication: OVARIAN CANCER
     Dosage: DATE OF MOST RECENT DOSE OF PLACEBO PRIOR TO AE ONSET 29/AUG/2018
     Route: 042
     Dates: start: 20180505
  4. BEVACIZUMAB. [Suspect]
     Active Substance: BEVACIZUMAB
     Indication: OVARIAN CANCER
     Dosage: DATE OF MOST RECENT DOSE (780 MG) OF BEVACIZUMAB?PRIOR TO AE ONSET 29/AUG/2018
     Route: 042
     Dates: start: 20180530

REACTIONS (1)
  - Nephropathy [Recovered/Resolved]

NARRATIVE: CASE EVENT DATE: 20190108
